FAERS Safety Report 24272253 (Version 1)
Quarter: 2024Q3

REPORT INFORMATION
  Report Type: Spontaneous
  Country: JP (occurrence: JP)
  Receive Date: 20240902
  Receipt Date: 20240902
  Transmission Date: 20241017
  Serious: Yes (Hospitalization)
  Sender: CHEPLAPHARM
  Company Number: JP-CHEPLA-2024011107

PATIENT
  Age: 42 Year
  Sex: Female

DRUGS (6)
  1. OLANZAPINE [Suspect]
     Active Substance: OLANZAPINE
     Dosage: 50 MG OF OLANZAPINE (20 TABLETS OF 2.5 MG EACH)
  2. NITRAZEPAM [Suspect]
     Active Substance: NITRAZEPAM
     Indication: Depression
     Dosage: 600 MG OF NITRAZEPAM (120 TABLETS OF 5 MG EACH)
  3. VALPROIC ACID [Suspect]
     Active Substance: VALPROIC ACID
     Indication: Depression
     Dosage: VALPROIC ACID 200 MG, ONE TABLET
  4. VALPROIC ACID [Suspect]
     Active Substance: VALPROIC ACID
     Indication: Depression
     Dosage: 35,600 MG OF VALPROIC ACID (178 TABLETS OF 200 MG EACH)
  5. CHLORPROMAZINE HYDROCHLORIDE [Concomitant]
     Active Substance: CHLORPROMAZINE HYDROCHLORIDE
     Indication: Depression
     Dosage: CHLORPROMAZINE HYDROCHLORIDE 50 MG, TWO TABLETS
  6. FLUNITRAZEPAM [Concomitant]
     Active Substance: FLUNITRAZEPAM
     Indication: Depression
     Dosage: FLUNITRAZEPAM 1 MG

REACTIONS (11)
  - Overdose [Unknown]
  - Somnolence [Recovered/Resolved]
  - Unresponsive to stimuli [Recovered/Resolved]
  - Hypoxia [Unknown]
  - Respiratory acidosis [Unknown]
  - Hypotension [Unknown]
  - Blood lactic acid increased [Unknown]
  - Altered state of consciousness [Unknown]
  - Cardiogenic shock [Unknown]
  - Pneumonia aspiration [Unknown]
  - Diabetes insipidus [Recovered/Resolved]
